FAERS Safety Report 13123680 (Version 2)
Quarter: 2017Q1

REPORT INFORMATION
  Report Type: Spontaneous
  Country: DE (occurrence: DE)
  Receive Date: 20170117
  Receipt Date: 20170213
  Transmission Date: 20170428
  Serious: Yes (Hospitalization)
  Sender: FDA-Public Use
  Company Number: DE-ROCHE-1880330

PATIENT
  Age: 36 Year
  Sex: Female

DRUGS (14)
  1. CARBAMAZEPIN [Concomitant]
     Active Substance: CARBAMAZEPINE
     Route: 048
     Dates: start: 20140820
  2. MABTHERA [Suspect]
     Active Substance: RITUXIMAB
     Dosage: 2 ND CYCLE
     Route: 042
     Dates: start: 20140827
  3. MABTHERA [Suspect]
     Active Substance: RITUXIMAB
     Dosage: 4 CYCLE
     Route: 042
     Dates: start: 20151208
  4. NOVALGIN [Concomitant]
     Active Substance: METAMIZOLE SODIUM
     Route: 048
     Dates: start: 20140801
  5. MABTHERA [Suspect]
     Active Substance: RITUXIMAB
     Dosage: 6 CYCLE
     Route: 042
     Dates: start: 20170126
  6. MABTHERA [Suspect]
     Active Substance: RITUXIMAB
     Dosage: 3 CYCLE
     Route: 042
     Dates: start: 20150313
  7. LIORESAL [Concomitant]
     Active Substance: BACLOFEN
     Indication: MUSCLE SPASTICITY
     Route: 048
     Dates: start: 20140523
  8. CIPRAMIL [Concomitant]
     Active Substance: CITALOPRAM HYDROBROMIDE
     Indication: DEPRESSION
     Route: 048
     Dates: start: 20140801
  9. TORASEMID [Concomitant]
     Active Substance: TORSEMIDE
     Indication: OEDEMA
     Route: 048
     Dates: start: 20140801
  10. MABTHERA [Suspect]
     Active Substance: RITUXIMAB
     Dosage: 1ST CYCLE
     Route: 042
     Dates: start: 20140807
  11. GABAPENTIN. [Concomitant]
     Active Substance: GABAPENTIN
     Route: 048
     Dates: start: 20140820
  12. MABTHERA [Suspect]
     Active Substance: RITUXIMAB
     Indication: NEUROMYELITIS OPTICA SPECTRUM DISORDER
     Dosage: 0 CYCLE
     Route: 042
     Dates: start: 20140523, end: 20160531
  13. MABTHERA [Suspect]
     Active Substance: RITUXIMAB
     Dosage: 7TH CYCLE
     Route: 042
     Dates: start: 20170131
  14. ZOPICLON [Concomitant]
     Active Substance: ZOPICLONE
     Indication: SLEEP DISORDER
     Route: 048
     Dates: start: 20140523

REACTIONS (3)
  - Off label use [Unknown]
  - Product use issue [Unknown]
  - Meningioma [Recovered/Resolved]

NARRATIVE: CASE EVENT DATE: 20160726
